FAERS Safety Report 19455553 (Version 1)
Quarter: 2021Q2

REPORT INFORMATION
  Report Type: Spontaneous
  Country: TR (occurrence: TR)
  Receive Date: 20210623
  Receipt Date: 20210623
  Transmission Date: 20210717
  Serious: Yes (Hospitalization)
  Sender: FDA-Public Use
  Company Number: TR-GRANULES-TR-2021GRALIT00359

PATIENT
  Age: 21 Year
  Sex: Female

DRUGS (2)
  1. RISPERIDON [Interacting]
     Active Substance: RISPERIDONE
     Indication: MANIC SYMPTOM
     Route: 065
  2. SERTRALINE HYDROCHLORIDE. [Suspect]
     Active Substance: SERTRALINE HYDROCHLORIDE
     Indication: DEPRESSIVE SYMPTOM
     Route: 065

REACTIONS (2)
  - Mania [Recovering/Resolving]
  - Withdrawal syndrome [Recovering/Resolving]
